FAERS Safety Report 15041641 (Version 1)
Quarter: 2018Q2

REPORT INFORMATION
  Report Type: Report from Study
  Country: KR (occurrence: KR)
  Receive Date: 20180621
  Receipt Date: 20180621
  Transmission Date: 20180711
  Serious: Yes (Hospitalization)
  Sender: FDA-Public Use
  Company Number: KR-ROCHE-1908253

PATIENT
  Age: 54 Year
  Sex: Female
  Weight: 55 kg

DRUGS (28)
  1. ATEZOLIZUMAB. [Suspect]
     Active Substance: ATEZOLIZUMAB
     Indication: NON-SMALL CELL LUNG CANCER STAGE IV
     Dosage: DATE OF THE MOST RECENT DOSE PRIOR TO THE EVENT ONSET: 28/FEB/2017 1200 MG
     Route: 042
     Dates: start: 20170228
  2. PEMETREXED. [Suspect]
     Active Substance: PEMETREXED
     Indication: NON-SMALL CELL LUNG CANCER STAGE IV
     Dosage: DATE OF THE MOST RECENT DOSE PRIOR TO THE EVENT ONSET: 28/FEB/2017 OF 790 MG?500 MG/M2 ON DAY 1 Q3W
     Route: 042
     Dates: start: 20170228
  3. CALCIUM GLUCONATE. [Concomitant]
     Active Substance: CALCIUM GLUCONATE
     Route: 065
     Dates: start: 20170316, end: 20170316
  4. MACPERAN [Concomitant]
     Active Substance: METOCLOPRAMIDE HYDROCHLORIDE
     Route: 065
     Dates: start: 20170319, end: 20170323
  5. AD-MUC (SOUTH KOREA) [Concomitant]
     Indication: STOMATITIS
     Route: 065
     Dates: start: 20170321, end: 20170321
  6. CARBOPLATIN. [Suspect]
     Active Substance: CARBOPLATIN
     Indication: NON-SMALL CELL LUNG CANCER STAGE IV
     Dosage: DATE OF THE MOST RECENT DOSE PRIOR TO THE EVENT ONSET: 28/FEB/2017 OF 690 MG?ON DAY 1 Q3W FOR 4 OR 6
     Route: 042
     Dates: start: 20170228
  7. ALOXI [Concomitant]
     Active Substance: PALONOSETRON HYDROCHLORIDE
     Route: 065
     Dates: start: 20170410, end: 20170410
  8. PERIOLIMEL N4E [Concomitant]
     Route: 065
     Dates: start: 20170316, end: 20170316
  9. MEGACE [Concomitant]
     Active Substance: MEGESTROL ACETATE
     Route: 065
     Dates: start: 20170330, end: 20170410
  10. NEUTROGIN [Concomitant]
     Active Substance: LENOGRASTIM
     Route: 065
     Dates: start: 20170316, end: 20170316
  11. CRAVIT [Concomitant]
     Active Substance: LEVOFLOXACIN
     Indication: PHARYNGITIS
     Route: 065
     Dates: start: 20170312, end: 20170322
  12. TAZOPERAN [Concomitant]
     Indication: PHARYNGITIS
     Route: 065
     Dates: start: 20170315, end: 20170315
  13. AGIO GRAN [Concomitant]
     Indication: CONSTIPATION
     Route: 065
     Dates: start: 20170318, end: 20170323
  14. AUGMENTIN [Concomitant]
     Active Substance: AMOXICILLIN\CLAVULANATE POTASSIUM
     Indication: PHARYNGITIS
     Route: 065
     Dates: start: 20170313, end: 20170317
  15. ULCERMIN (SOUTH KOREA) [Concomitant]
     Route: 065
     Dates: start: 20170318, end: 20170323
  16. TRIDOL [Concomitant]
     Active Substance: TRAMADOL HYDROCHLORIDE
     Indication: PHARYNGITIS
     Route: 065
     Dates: start: 20170313, end: 20170317
  17. GASTER (SOUTH KOREA) [Concomitant]
     Route: 065
     Dates: start: 20170313, end: 20170323
  18. TARASYN [Concomitant]
     Indication: OROPHARYNGEAL PAIN
     Route: 065
     Dates: start: 20170313, end: 20170313
  19. PETHIDINE [Concomitant]
     Active Substance: MEPERIDINE
     Indication: OROPHARYNGEAL PAIN
     Route: 065
     Dates: start: 20170315, end: 20170315
  20. VANCOMYCIN [Concomitant]
     Active Substance: VANCOMYCIN
     Indication: PHARYNGITIS
     Route: 065
     Dates: start: 20170316, end: 20170321
  21. HEXAMEDINE [Concomitant]
     Indication: OROPHARYNGEAL PAIN
     Route: 065
     Dates: start: 20170318, end: 20170319
  22. ACTINAMIDE [Concomitant]
     Route: 065
     Dates: start: 20170223, end: 20170223
  23. ALOXI [Concomitant]
     Active Substance: PALONOSETRON HYDROCHLORIDE
     Route: 065
     Dates: start: 20170228, end: 20170228
  24. TRIDOL [Concomitant]
     Active Substance: TRAMADOL HYDROCHLORIDE
     Indication: OROPHARYNGEAL PAIN
     Route: 065
     Dates: start: 20170312, end: 20170315
  25. NALOXONE [Concomitant]
     Active Substance: NALOXONE
     Route: 065
     Dates: start: 20170316, end: 20170316
  26. PHOSTEN [Concomitant]
     Route: 065
     Dates: start: 20170316, end: 20170316
  27. FOLIC ACID. [Concomitant]
     Active Substance: FOLIC ACID
     Route: 065
     Dates: start: 20170214
  28. ALOXI [Concomitant]
     Active Substance: PALONOSETRON HYDROCHLORIDE
     Route: 065
     Dates: start: 20170319, end: 20170319

REACTIONS (1)
  - Pharyngitis [Recovered/Resolved]

NARRATIVE: CASE EVENT DATE: 20170309
